FAERS Safety Report 20865359 (Version 5)
Quarter: 2024Q1

REPORT INFORMATION
  Report Type: Other
  Country: JP (occurrence: JP)
  Receive Date: 20220524
  Receipt Date: 20240320
  Transmission Date: 20240410
  Serious: Yes (Death, Hospitalization, Other)
  Sender: FDA-Public Use
  Company Number: JP-CHUGAI-2022005032

PATIENT
  Age: 82 Year
  Sex: Male
  Weight: 66.5 kg

DRUGS (10)
  1. TECENTRIQ [Suspect]
     Active Substance: ATEZOLIZUMAB
     Indication: Hepatocellular carcinoma
     Dosage: 1200 MILLIGRAM, ONCE/3WEEKS
     Route: 041
     Dates: start: 20220209, end: 20220323
  2. AVASTIN [Suspect]
     Active Substance: BEVACIZUMAB
     Indication: Hepatocellular carcinoma
     Dosage: 1000 MILLIGRAM, ONCE/3WEEKS
     Route: 042
     Dates: start: 20220209, end: 20220323
  3. URSODIOL [Concomitant]
     Active Substance: URSODIOL
     Indication: Hepatic function abnormal
     Dosage: 100 MILLIGRAM, TID
     Route: 048
     Dates: start: 20121126
  4. SUPACAL [Concomitant]
     Indication: Cholelithiasis
     Dosage: 40 MILLIGRAM, TID
     Route: 048
     Dates: start: 20131107
  5. AVAPRO [Concomitant]
     Active Substance: IRBESARTAN
     Indication: Blood pressure increased
     Dosage: 50 MILLIGRAM, QD
     Route: 048
     Dates: start: 20140219
  6. NEXIUM [Concomitant]
     Active Substance: ESOMEPRAZOLE MAGNESIUM
     Indication: Gastrooesophageal reflux disease
     Dosage: 20 MILLIGRAM, QD
     Route: 048
     Dates: start: 20121215
  7. CILOSTAZOL [Concomitant]
     Active Substance: CILOSTAZOL
     Indication: Cerebral infarction
     Dosage: 50 MILLIGRAM, BID
     Route: 048
     Dates: start: 20140219
  8. AMINO ACIDS, SOURCE UNSPECIFIED [Concomitant]
     Active Substance: AMINO ACIDS, SOURCE UNSPECIFIED
     Indication: Blood albumin decreased
     Dosage: 1 DOSAGE FORM, TID
     Route: 048
     Dates: start: 20180517
  9. LASIX [Concomitant]
     Active Substance: FUROSEMIDE
     Indication: Oedema
     Dosage: 20 MILLIGRAM, QD
     Route: 048
     Dates: start: 20180612
  10. SPIRONOLACTONE [Concomitant]
     Active Substance: SPIRONOLACTONE
     Indication: Oedema
     Dosage: 25 MILLIGRAM, QD
     Route: 048
     Dates: start: 20190124

REACTIONS (6)
  - Myositis [Fatal]
  - Myasthenia gravis [Fatal]
  - Subdural haematoma [Unknown]
  - Putamen haemorrhage [Unknown]
  - Myocarditis [Unknown]
  - Hepatorenal syndrome [Unknown]

NARRATIVE: CASE EVENT DATE: 20220315
